FAERS Safety Report 7737540-3 (Version None)
Quarter: 2011Q3

REPORT INFORMATION
  Report Type: 
  Country: None (occurrence: None)
  Receive Date: 20110902
  Receipt Date: 20110822
  Transmission Date: 20111222
  Serious: Yes (Other)
  Sender: FDA-Public Use
  Company Number: JP-2011-11395

PATIENT
  Age: 80 Year
  Sex: Female

DRUGS (1)
  1. PLETAL [Suspect]
     Dosage: 200 MG MILLIGRAM(S), DAILY DOSE, ORAL
     Route: 048

REACTIONS (2)
  - POST PROCEDURAL HAEMORRHAGE [None]
  - DEVICE BREAKAGE [None]
